FAERS Safety Report 9645143 (Version 1)
Quarter: 2013Q4

REPORT INFORMATION
  Report Type: Report from Study
  Country: NL (occurrence: NL)
  Receive Date: 20131025
  Receipt Date: 20131025
  Transmission Date: 20140711
  Serious: Yes (Hospitalization)
  Sender: FDA-Public Use
  Company Number: NL-SA-2013SA106595

PATIENT
  Age: 68 Year
  Sex: Male

DRUGS (5)
  1. CABAZITAXEL [Suspect]
     Indication: PROSTATE CANCER
     Route: 042
     Dates: start: 20130823, end: 20130823
  2. CABAZITAXEL [Suspect]
     Indication: PROSTATE CANCER
     Route: 042
     Dates: start: 20131004, end: 20131004
  3. BUDESONIDE [Suspect]
     Indication: PROSTATE CANCER
     Route: 048
     Dates: start: 20130821, end: 20130821
  4. BUDESONIDE [Suspect]
     Indication: PROSTATE CANCER
     Route: 048
     Dates: start: 20131003, end: 20131003
  5. PREDNISONE [Suspect]
     Indication: PRODUCT USED FOR UNKNOWN INDICATION
     Route: 048

REACTIONS (1)
  - Urinary retention [Unknown]
